FAERS Safety Report 10230334 (Version 1)
Quarter: 2014Q2

REPORT INFORMATION
  Report Type: Spontaneous
  Country: US (occurrence: US)
  Receive Date: 20140611
  Receipt Date: 20140611
  Transmission Date: 20141212
  Serious: No
  Sender: FDA-Public Use
  Company Number: US-ASTRAZENECA-2014SE38315

PATIENT
  Age: 62 Year
  Sex: Female
  Weight: 67.1 kg

DRUGS (15)
  1. SYMBICORT [Suspect]
     Indication: ASTHMA
     Dosage: 160/4.5, 2 PUFFS BID
     Route: 055
  2. LISINOPRIL [Suspect]
     Indication: BLOOD PRESSURE ABNORMAL
     Route: 048
  3. PRILOSEC [Suspect]
     Indication: BARRETT^S OESOPHAGUS
     Route: 048
  4. SEROQUEL [Suspect]
     Indication: DEPRESSION
     Route: 048
     Dates: start: 2011
  5. MORPHINE [Suspect]
     Route: 065
  6. ALBUTEROL [Concomitant]
     Indication: INHALATION THERAPY
     Dosage: UNKNOWN PRN
     Route: 055
  7. LIPITOR [Concomitant]
     Indication: BLOOD CHOLESTEROL DECREASED
     Route: 048
  8. ARICEPT [Concomitant]
     Indication: DEMENTIA
     Route: 048
     Dates: start: 2011
  9. METFORMIN [Concomitant]
     Indication: DIABETES MELLITUS
     Route: 048
     Dates: start: 2009
  10. FISH OIL CAPS [Concomitant]
     Indication: BLOOD TRIGLYCERIDES ABNORMAL
     Route: 048
     Dates: start: 2009
  11. KLONOPIN [Concomitant]
     Indication: ANXIETY
     Route: 048
  12. CYMBALTA [Concomitant]
     Indication: DEPRESSION
     Route: 048
  13. CYMBALTA [Concomitant]
     Indication: BIPOLAR DISORDER
     Route: 048
  14. TRAZODONE [Concomitant]
     Indication: SLEEP DISORDER THERAPY
     Route: 048
  15. TRAZODONE [Concomitant]
     Indication: DEPRESSION
     Route: 048

REACTIONS (3)
  - Dementia [Unknown]
  - Injury associated with device [Unknown]
  - Drug hypersensitivity [Unknown]
